FAERS Safety Report 6857887-2 (Version None)
Quarter: 2010Q3

REPORT INFORMATION
  Report Type: 
  Country: None (occurrence: None)
  Receive Date: 20100719
  Receipt Date: 20080318
  Transmission Date: 20110219
  Serious: No
  Sender: FDA-Public Use
  Company Number: US-PFIZER INC-2008009429

PATIENT
  Sex: Female
  Weight: 57.2 kg

DRUGS (3)
  1. CHANTIX [Suspect]
     Indication: SMOKING CESSATION THERAPY
     Dates: start: 20080111
  2. COMBIVENT [Concomitant]
  3. VITAMINS [Concomitant]

REACTIONS (3)
  - ABDOMINAL PAIN [None]
  - BACK PAIN [None]
  - LIVER FUNCTION TEST ABNORMAL [None]
